FAERS Safety Report 5036967-0 (Version None)
Quarter: 2006Q2

REPORT INFORMATION
  Report Type: 
  Country: None (occurrence: None)
  Receive Date: 20060622
  Receipt Date: 20060612
  Transmission Date: 20061013
  Serious: Yes (Other)
  Sender: FDA-Public Use
  Company Number: HQWYE038515APR05

PATIENT
  Age: 57 Year
  Sex: Female
  Weight: 49.03 kg

DRUGS (3)
  1. PREMPRO [Suspect]
     Indication: HORMONE REPLACEMENT THERAPY
     Dosage: ORAL
     Route: 048
     Dates: start: 19930101, end: 20030909
  2. MEDROXYPROGESTERONE [Suspect]
  3. PREMARIN [Suspect]
     Indication: HORMONE REPLACEMENT THERAPY
     Dosage: ORAL
     Route: 048
     Dates: start: 19930101, end: 20030101

REACTIONS (14)
  - APATHY [None]
  - ASTHENIA [None]
  - BREAST CANCER IN SITU [None]
  - BREAST CANCER METASTATIC [None]
  - BREAST CANCER STAGE II [None]
  - BREAST MASS [None]
  - CAROTID ARTERY DISSECTION [None]
  - DEPRESSION [None]
  - FEELING ABNORMAL [None]
  - NEUROLOGICAL SYMPTOM [None]
  - OESTROGEN RECEPTOR ASSAY POSITIVE [None]
  - PROGESTERONE RECEPTOR ASSAY POSITIVE [None]
  - SUICIDAL IDEATION [None]
  - UTERINE POLYP [None]
